FAERS Safety Report 11821066 (Version 1)
Quarter: 2015Q4

REPORT INFORMATION
  Report Type: Spontaneous
  Country: US (occurrence: US)
  Receive Date: 20151210
  Receipt Date: 20151210
  Transmission Date: 20160305
  Serious: No
  Sender: FDA-Public Use
  Company Number: US-JNJFOC-20150619194

PATIENT
  Age: 67 Year
  Sex: Male

DRUGS (19)
  1. SIMVASTATIN. [Concomitant]
     Active Substance: SIMVASTATIN
  2. LISINOPRIL. [Concomitant]
     Active Substance: LISINOPRIL
  3. VITAMIN D [Concomitant]
     Active Substance: CHOLECALCIFEROL
  4. IMBRUVICA [Suspect]
     Active Substance: IBRUTINIB
     Indication: HAIR DISORDER
     Route: 048
     Dates: start: 20150529
  5. IMBRUVICA [Suspect]
     Active Substance: IBRUTINIB
     Indication: DIFFUSE LARGE B-CELL LYMPHOMA STAGE II
     Route: 048
     Dates: start: 20150529
  6. DOXYCYCLINE. [Concomitant]
     Active Substance: DOXYCYCLINE
  7. ZYRTEC [Concomitant]
     Active Substance: CETIRIZINE HYDROCHLORIDE
  8. CELEXA [Concomitant]
     Active Substance: CITALOPRAM HYDROBROMIDE
  9. DOXEPIN [Concomitant]
     Active Substance: DOXEPIN
  10. DIPHENHYDRAMINE. [Concomitant]
     Active Substance: DIPHENHYDRAMINE
  11. LATANOPROST. [Concomitant]
     Active Substance: LATANOPROST
  12. IMBRUVICA [Suspect]
     Active Substance: IBRUTINIB
     Indication: HAIR DISORDER
     Route: 048
     Dates: start: 20150402, end: 201505
  13. IMBRUVICA [Suspect]
     Active Substance: IBRUTINIB
     Indication: DIFFUSE LARGE B-CELL LYMPHOMA STAGE II
     Route: 048
     Dates: start: 20150402, end: 201505
  14. INSULIN HUMAN [Concomitant]
     Active Substance: INSULIN HUMAN
  15. IRON [Concomitant]
     Active Substance: IRON
  16. STOOL SOFTENER [Concomitant]
     Active Substance: DOCUSATE CALCIUM
  17. HYDROCHLOROTHIAZIDE. [Concomitant]
     Active Substance: HYDROCHLOROTHIAZIDE
  18. ALLOPURINOL. [Concomitant]
     Active Substance: ALLOPURINOL
  19. SPIRIVA [Concomitant]
     Active Substance: TIOTROPIUM BROMIDE MONOHYDRATE

REACTIONS (2)
  - Infection [Recovered/Resolved]
  - Impaired healing [Recovered/Resolved]

NARRATIVE: CASE EVENT DATE: 201505
